FAERS Safety Report 9982352 (Version 2)
Quarter: 2015Q1

REPORT INFORMATION
  Report Type: Report from Study
  Country: US (occurrence: US)
  Receive Date: 20140307
  Receipt Date: 20150216
  Transmission Date: 20150721
  Serious: No
  Sender: FDA-Public Use
  Company Number: US-ABBVIE-13P-163-1179557-00

PATIENT
  Age: 66 Year
  Sex: Female

DRUGS (7)
  1. CLOBETASOL [Concomitant]
     Active Substance: CLOBETASOL
     Indication: PRODUCT USED FOR UNKNOWN INDICATION
  2. HUMIRA [Interacting]
     Active Substance: ADALIMUMAB
     Dates: start: 20131122, end: 20131122
  3. HUMIRA [Suspect]
     Active Substance: ADALIMUMAB
     Indication: PSORIASIS
     Dates: start: 20131101, end: 20131101
  4. HUMIRA [Interacting]
     Active Substance: ADALIMUMAB
     Dates: start: 20131108, end: 20131108
  5. HUMIRA [Interacting]
     Active Substance: ADALIMUMAB
     Dates: start: 201401, end: 20140307
  6. FULL BODY LIGHTS [Interacting]
     Active Substance: DEVICE
     Indication: PSORIASIS
     Dates: start: 2011
  7. ALLERGY SHOTS [Concomitant]
     Active Substance: UNSPECIFIED INGREDIENT
     Indication: PRODUCT USED FOR UNKNOWN INDICATION

REACTIONS (4)
  - Drug ineffective [Unknown]
  - Psoriasis [Recovering/Resolving]
  - Drug interaction [Unknown]
  - Rash pruritic [Recovered/Resolved]

NARRATIVE: CASE EVENT DATE: 20131101
